FAERS Safety Report 9213355 (Version 2)
Quarter: 2013Q2

REPORT INFORMATION
  Report Type: Spontaneous
  Country: US (occurrence: US)
  Receive Date: 20130405
  Receipt Date: 20130510
  Transmission Date: 20140414
  Serious: Yes (Hospitalization)
  Sender: FDA-Public Use
  Company Number: PHEH2013US004713

PATIENT
  Sex: Female

DRUGS (2)
  1. DIOVAN HCT [Suspect]
     Indication: HYPERTENSION
     Dosage: UNK UKN, UNK
     Dates: end: 2007
  2. NORVASC [Concomitant]
     Indication: HYPERTENSION
     Dosage: UNK UKN, UNK

REACTIONS (4)
  - Loss of consciousness [Unknown]
  - Fall [Unknown]
  - Hypokalaemia [Unknown]
  - Circulatory collapse [Unknown]
